FAERS Safety Report 20073248 (Version 2)
Quarter: 2021Q4

REPORT INFORMATION
  Report Type: Report from Study
  Country: US (occurrence: US)
  Receive Date: 20211116
  Receipt Date: 20211119
  Transmission Date: 20220303
  Serious: No
  Sender: FDA-Public Use
  Company Number: US-Ipsen Biopharmaceuticals, Inc.-2021-28365

PATIENT
  Age: 69 Year
  Sex: Male

DRUGS (1)
  1. SOMATULINE DEPOT [Suspect]
     Active Substance: LANREOTIDE ACETATE
     Indication: Carcinoid tumour
     Dosage: 120 MG EVERY 4 WEEKS
     Route: 058
     Dates: start: 201802

REACTIONS (3)
  - Blood creatinine increased [Unknown]
  - Flatulence [Unknown]
  - Diarrhoea [Recovering/Resolving]
